FAERS Safety Report 5770039-2 (Version None)
Quarter: 2008Q2

REPORT INFORMATION
  Report Type: 
  Country: None (occurrence: None)
  Receive Date: 20080613
  Receipt Date: 20080416
  Transmission Date: 20081010
  Serious: No
  Sender: FDA-Public Use
  Company Number: US-ABBOTT-08P-163-0447628-00

PATIENT
  Sex: Female
  Weight: 72.64 kg

DRUGS (9)
  1. HUMIRA [Suspect]
     Indication: CROHN'S DISEASE
     Dosage: LOADING DOSE
     Route: 058
     Dates: start: 20080416, end: 20080416
  2. HUMIRA [Suspect]
     Route: 058
  3. ALLERGY MEDICATION [Concomitant]
     Indication: HYPERSENSITIVITY
     Dosage: DAILY
     Route: 048
  4. MESALAMINE [Concomitant]
     Indication: CROHN'S DISEASE
     Route: 048
  5. PAROXETINE HCL [Concomitant]
     Indication: DEPRESSION
     Dosage: DAILY
     Route: 048
  6. LORAZEPAM [Concomitant]
     Indication: ANXIETY
     Route: 048
  7. TRAZODONE HCL [Concomitant]
     Indication: INSOMNIA
     Dosage: AT BED TIME
     Route: 048
  8. OMEPRAZOLE [Concomitant]
     Indication: GASTROOESOPHAGEAL REFLUX DISEASE
     Dosage: DAILY
     Route: 048
  9. BUDESONIDE [Concomitant]
     Indication: CROHN'S DISEASE
     Dosage: THREE CAPS EVERY AM
     Route: 048
     Dates: start: 20080310

REACTIONS (1)
  - ACCIDENTAL EXPOSURE [None]
